FAERS Safety Report 6457924-3 (Version None)
Quarter: 2009Q4

REPORT INFORMATION
  Report Type: 
  Country: None (occurrence: None)
  Receive Date: 20091125
  Receipt Date: 20091116
  Transmission Date: 20100525
  Serious: Yes (Life-Threatening, Hospitalization)
  Sender: FDA-Public Use
  Company Number: JP-ABBOTT-09P-087-0608347-00

PATIENT
  Sex: Male

DRUGS (11)
  1. SEVOFRANE [Suspect]
     Indication: GENERAL ANAESTHESIA
     Dosage: 1-2%
     Route: 055
     Dates: start: 20081022, end: 20081022
  2. PROPOFOL [Suspect]
     Indication: INDUCTION OF ANAESTHESIA
     Route: 042
     Dates: start: 20081022, end: 20081022
  3. REMIFENTANIL [Concomitant]
     Indication: SEDATIVE THERAPY
     Dates: start: 20081022, end: 20081022
  4. REMIFENTANIL [Concomitant]
     Indication: MAINTENANCE OF ANAESTHESIA
  5. VECURONIUM BROMIDE [Concomitant]
     Indication: INDUCTION OF ANAESTHESIA
     Route: 042
     Dates: start: 20081022, end: 20081022
  6. FENTANYL-100 [Concomitant]
     Indication: MAINTENANCE OF ANAESTHESIA
     Route: 042
     Dates: start: 20081022, end: 20081022
  7. ATROPINE [Concomitant]
     Indication: BRADYCARDIA
     Route: 065
  8. LIDOCAINE [Concomitant]
     Indication: BRADYCARDIA
     Route: 065
     Dates: start: 20081022, end: 20081022
  9. ROPIVACAINE [Concomitant]
     Indication: EPIDURAL ANAESTHESIA
     Route: 008
     Dates: start: 20081022, end: 20081022
  10. EPHEDRINE [Concomitant]
     Indication: HYPERTENSION
     Route: 042
     Dates: start: 20081022, end: 20081022
  11. DOPAMINE HCL [Concomitant]
     Indication: HYPERTENSION
     Dosage: 2-7MCG/KG/MIN
     Dates: start: 20081022, end: 20081022

REACTIONS (1)
  - CARDIAC ARREST [None]
